FAERS Safety Report 6493834-3 (Version None)
Quarter: 2009Q4

REPORT INFORMATION
  Report Type: 
  Country: None (occurrence: None)
  Receive Date: 20091214
  Receipt Date: 20081110
  Transmission Date: 20100525
  Serious: No
  Sender: FDA-Public Use
  Company Number: US-BRISTOL-MYERS SQUIBB COMPANY-14401004

PATIENT
  Age: 44 Year
  Sex: Male
  Weight: 105 kg

DRUGS (10)
  1. ABILIFY [Suspect]
     Indication: SCHIZOPHRENIA
     Dosage: STARTED 8 DAYS AGO
  2. ABILIFY [Suspect]
     Indication: DEPRESSION
     Dosage: STARTED 8 DAYS AGO
  3. ABILIFY [Suspect]
     Indication: ANXIETY
     Dosage: STARTED 8 DAYS AGO
  4. PROLIXIN [Suspect]
     Indication: SCHIZOPHRENIA
  5. PROLIXIN [Suspect]
     Indication: DEPRESSION
  6. PROLIXIN [Suspect]
     Indication: ANXIETY
  7. PROLIXIN [Suspect]
     Indication: SCHIZOPHRENIA
  8. PROLIXIN [Suspect]
     Indication: DEPRESSION
  9. PROLIXIN [Suspect]
     Indication: ANXIETY
  10. ALBUTEROL [Concomitant]

REACTIONS (2)
  - CONSTIPATION [None]
  - DIZZINESS [None]
